FAERS Safety Report 25261814 (Version 1)
Quarter: 2025Q2

REPORT INFORMATION
  Report Type: Spontaneous
  Country: US (occurrence: US)
  Receive Date: 20250502
  Receipt Date: 20250502
  Transmission Date: 20250717
  Serious: No
  Sender: NOVARTIS
  Company Number: US-002147023-NVSC2025US066929

PATIENT
  Sex: Male

DRUGS (1)
  1. LEQVIO [Suspect]
     Active Substance: INCLISIRAN SODIUM
     Indication: Product used for unknown indication
     Route: 065

REACTIONS (9)
  - Pain [Unknown]
  - Granulomatous dermatitis [Unknown]
  - Skin disorder [Unknown]
  - Pigmentation disorder [Unknown]
  - Peripheral swelling [Unknown]
  - Neck pain [Unknown]
  - Skin burning sensation [Unknown]
  - Hypersensitivity [Unknown]
  - Joint swelling [Unknown]
